FAERS Safety Report 8833961 (Version 1)
Quarter: 2012Q4

REPORT INFORMATION
  Report Type: Spontaneous
  Country: US (occurrence: None)
  Receive Date: 20121010
  Receipt Date: 20121010
  Transmission Date: 20130627
  Serious: Yes (Other)
  Sender: FDA-Public Use
  Company Number: None

PATIENT
  Age: 34 Year
  Sex: Male
  Weight: 90.72 kg

DRUGS (1)
  1. ZOLPIDEM [Suspect]
     Dosage: as needed at bed
used morethan 1 make
expiration date 07/15/2012
     Route: 048
     Dates: start: 20040101, end: 20110914

REACTIONS (2)
  - Product substitution issue [None]
  - Therapeutic product ineffective [None]
